FAERS Safety Report 18242445 (Version 1)
Quarter: 2020Q3

REPORT INFORMATION
  Report Type: Spontaneous
  Country: DE (occurrence: DE)
  Receive Date: 20200908
  Receipt Date: 20200908
  Transmission Date: 20201103
  Serious: Yes (Other)
  Sender: FDA-Public Use
  Company Number: DE-UCBSA-2020034205

PATIENT
  Age: 17 Year
  Sex: Male

DRUGS (9)
  1. BRIVIACT [Suspect]
     Active Substance: BRIVARACETAM
     Indication: PRODUCT USED FOR UNKNOWN INDICATION
     Dosage: 300 MG DAILY
  2. BRIVIACT [Suspect]
     Active Substance: BRIVARACETAM
     Dosage: 100 MG DAILY
  3. VIMPAT [Suspect]
     Active Substance: LACOSAMIDE
     Indication: PRODUCT USED FOR UNKNOWN INDICATION
     Dosage: 700 MG DAILY
     Dates: start: 2017
  4. VIMPAT [Suspect]
     Active Substance: LACOSAMIDE
     Dosage: 400 MG DAILY
  5. PERAMPANEL [Concomitant]
     Active Substance: PERAMPANEL
     Dosage: 6 MG DAILY
  6. BRIVIACT [Suspect]
     Active Substance: BRIVARACETAM
     Dosage: 250 MG DAILY
  7. VIMPAT [Suspect]
     Active Substance: LACOSAMIDE
     Dosage: 500 MG DAILY
  8. PERAMPANEL [Concomitant]
     Active Substance: PERAMPANEL
     Indication: PRODUCT USED FOR UNKNOWN INDICATION
     Dosage: 8 MG DAILY
  9. LEVETIRACETAM. [Suspect]
     Active Substance: LEVETIRACETAM
     Indication: PRODUCT USED FOR UNKNOWN INDICATION
     Dosage: 4000 MG DAILY
     Dates: start: 2017

REACTIONS (6)
  - Dizziness [Unknown]
  - Overdose [Unknown]
  - Intentional product use issue [Unknown]
  - Fatigue [Unknown]
  - Partial seizures [Not Recovered/Not Resolved]
  - Off label use [Unknown]

NARRATIVE: CASE EVENT DATE: 2017
